FAERS Safety Report 9070326 (Version 6)
Quarter: 2013Q3

REPORT INFORMATION
  Report Type: Report from Study
  Country: US (occurrence: US)
  Receive Date: 20130215
  Receipt Date: 20130926
  Transmission Date: 20140515
  Serious: Yes (Hospitalization, Other)
  Sender: FDA-Public Use
  Company Number: US-009507513-1301USA014779

PATIENT
  Age: 39 Year
  Sex: Male
  Weight: 81.72 kg

DRUGS (19)
  1. BOCEPREVIR [Suspect]
     Indication: HEPATITIS C
     Dosage: 800 MG, TAKE 4 CAPSULES BY MOTH 3 TIMES A DAY WITH FOOD
     Route: 048
     Dates: start: 20120913
  2. RIBAVIRIN [Suspect]
     Indication: HEPATITIS C
     Dosage: 600 MG 3 CAPSULES PO EVERY MORNING, BID
     Route: 048
     Dates: start: 20120816, end: 20130124
  3. RIBAVIRIN [Suspect]
     Dosage: 400 MG, BID
     Route: 048
     Dates: end: 20130719
  4. PEGINTERFERON ALFA-2B [Suspect]
     Indication: HEPATITIS C
     Dosage: 0.5 ML, QW
     Route: 058
     Dates: start: 20120816
  5. PEGINTERFERON ALFA-2B [Suspect]
     Dosage: 105 MICROGRAM, QW
     Route: 058
     Dates: end: 20130719
  6. VALTREX [Concomitant]
     Dosage: 1 DF, BID
  7. COMFORT (ASPIRIN) [Concomitant]
     Dosage: USE AS DIRECT, BID
  8. NOVOLOG MIX 70/30 [Concomitant]
     Dosage: 25 UNIT, BID
     Route: 058
  9. LOMOTIL [Concomitant]
     Dosage: 1 DF,BEFORE EACH LOOSE STOOL, MAX 8/DAY
  10. CLINDAMYCIN HYDROCHLORIDE [Concomitant]
     Dosage: 300 MG, TID
     Route: 048
  11. LEVAQUIN [Concomitant]
     Dosage: 750 MG, QD
     Route: 048
  12. EPOGEN [Concomitant]
     Dosage: 2 ML, 40,000 UNITS IN CLINIC AS DIRECT
     Route: 058
  13. DEPO-TESTOSTERONE [Concomitant]
     Dosage: 1 ML, EVERY 2 WEEKS
     Route: 041
  14. COMPAZINE [Concomitant]
     Indication: NAUSEA
     Dosage: 1 OR 2 TABLET, Q6H
     Route: 048
  15. POLYETHYLENE GLYCOL 3350 [Concomitant]
     Route: 048
  16. BACTRIM DS [Concomitant]
     Dosage: 1 DF, BID
     Route: 048
  17. TEST-ESTRO [Concomitant]
     Dosage: UNK, BID
  18. HUMULIN 70/30 [Concomitant]
     Dosage: 50 UNITS, BID
     Route: 058
  19. MONOJECT PREFILL (SODIUM CHLORIDE) [Concomitant]
     Dosage: 1ML, BID

REACTIONS (4)
  - Cellulitis [Recovered/Resolved]
  - Anaemia [Recovered/Resolved]
  - Cellulitis [Recovered/Resolved]
  - Anaemia [Recovered/Resolved]
